FAERS Safety Report 17722263 (Version 1)
Quarter: 2020Q2

REPORT INFORMATION
  Report Type: Spontaneous
  Country: US (occurrence: US)
  Receive Date: 20200429
  Receipt Date: 20200429
  Transmission Date: 20200714
  Serious: No
  Sender: FDA-Public Use
  Company Number: US-MYLANLABS-2020M1040932

PATIENT
  Sex: Male

DRUGS (3)
  1. VITAMIN K3                         /00854101/ [Concomitant]
     Active Substance: MENADIONE
     Dosage: 1 MILLIGRAM, QD
  2. HYDROCHLOROTHIAZIDE. [Suspect]
     Active Substance: HYDROCHLOROTHIAZIDE
     Indication: NEPHROLITHIASIS
     Dosage: UNK
  3. TAMSULOSINE                        /01280301/ [Suspect]
     Active Substance: TAMSULOSIN
     Indication: NEPHROLITHIASIS
     Dosage: 0.4 MILLIGRAM, QD

REACTIONS (4)
  - Product use in unapproved indication [Unknown]
  - Tachycardia [Unknown]
  - Sinus arrhythmia [Unknown]
  - Dizziness [Unknown]
